FAERS Safety Report 11677727 (Version 1)
Quarter: 2015Q4

REPORT INFORMATION
  Report Type: Spontaneous
  Country: JP (occurrence: JP)
  Receive Date: 20151028
  Receipt Date: 20151028
  Transmission Date: 20160304
  Serious: Yes (Hospitalization, Other)
  Sender: FDA-Public Use
  Company Number: JP-BRISTOL-MYERS SQUIBB COMPANY-BMS-2015-071907

PATIENT
  Age: 19 Year
  Sex: Male

DRUGS (2)
  1. VEPESIDE [Suspect]
     Active Substance: ETOPOSIDE
     Indication: GERM CELL CANCER
     Route: 065
  2. CARBOPLATIN. [Suspect]
     Active Substance: CARBOPLATIN
     Indication: GERM CELL CANCER
     Route: 065

REACTIONS (3)
  - Off label use [Unknown]
  - Portal venous gas [Recovered/Resolved]
  - Pneumatosis intestinalis [Recovered/Resolved]
